FAERS Safety Report 25138935 (Version 1)
Quarter: 2025Q1

REPORT INFORMATION
  Report Type: Spontaneous
  Country: US (occurrence: US)
  Receive Date: 20250331
  Receipt Date: 20250331
  Transmission Date: 20250408
  Serious: Yes (Other)
  Sender: ORGANON
  Company Number: US-ORGANON-O2503USA001964

PATIENT
  Age: 73 Year
  Sex: Female

DRUGS (11)
  1. SINEMET [Suspect]
     Active Substance: CARBIDOPA\LEVODOPA
     Indication: Product used for unknown indication
  2. INGREZZA [Concomitant]
     Active Substance: VALBENAZINE
     Indication: Tardive dyskinesia
     Dosage: 80 MILLIGRAM, QOD
     Route: 048
     Dates: start: 20220516
  3. INGREZZA [Concomitant]
     Active Substance: VALBENAZINE
     Dates: start: 20230606
  4. INGREZZA [Concomitant]
     Active Substance: VALBENAZINE
     Route: 065
     Dates: start: 20241029
  5. FAMOTIDINE [Concomitant]
     Active Substance: FAMOTIDINE
  6. ROSUVASTATIN [Concomitant]
     Active Substance: ROSUVASTATIN
  7. REMERON [Concomitant]
     Active Substance: MIRTAZAPINE
  8. GABAPENTIN [Concomitant]
     Active Substance: GABAPENTIN
  9. PANTOPRAZOLE [Concomitant]
     Active Substance: PANTOPRAZOLE
  10. CYMBALTA [Concomitant]
     Active Substance: DULOXETINE HYDROCHLORIDE
  11. TRAZODONE [Concomitant]
     Active Substance: TRAZODONE HYDROCHLORIDE

REACTIONS (1)
  - Seizure [Recovered/Resolved]

NARRATIVE: CASE EVENT DATE: 20230601
